FAERS Safety Report 9768034 (Version 1)
Quarter: 2013Q4

REPORT INFORMATION
  Report Type: Spontaneous
  Country: FR (occurrence: FR)
  Receive Date: 20131217
  Receipt Date: 20131217
  Transmission Date: 20140711
  Serious: Yes (Hospitalization)
  Sender: FDA-Public Use
  Company Number: FR-PFIZER INC-2013355043

PATIENT
  Age: 64 Year
  Sex: Male

DRUGS (3)
  1. FLUOROURACILE PFIZER [Suspect]
     Dosage: 940 MG, 2X/DAY
     Route: 042
     Dates: start: 20131002, end: 20131005
  2. CISPLATIN MYLAN [Suspect]
     Dosage: 188 MG, SINGLE
     Route: 042
     Dates: start: 20131002
  3. ERBITUX [Suspect]
     Dosage: 752 MG, UNK
     Route: 042
     Dates: start: 20131002

REACTIONS (1)
  - Renal failure acute [Not Recovered/Not Resolved]
